FAERS Safety Report 13997695 (Version 2)
Quarter: 2017Q4

REPORT INFORMATION
  Report Type: Spontaneous
  Country: US (occurrence: US)
  Receive Date: 20170921
  Receipt Date: 20171107
  Transmission Date: 20180321
  Serious: No
  Sender: FDA-Public Use
  Company Number: US-ASTRAZENECA-2017SE96360

PATIENT
  Age: 17023 Day
  Sex: Male
  Weight: 99.8 kg

DRUGS (1)
  1. BYDUREON [Suspect]
     Active Substance: EXENATIDE
     Indication: TYPE 2 DIABETES MELLITUS
     Route: 058
     Dates: start: 201708

REACTIONS (4)
  - Erythema [Recovered/Resolved]
  - Frustration tolerance decreased [Unknown]
  - Product physical issue [Unknown]
  - Product compounding quality issue [Unknown]

NARRATIVE: CASE EVENT DATE: 20170919
